FAERS Safety Report 6898422-2 (Version None)
Quarter: 2010Q3

REPORT INFORMATION
  Report Type: 
  Country: None (occurrence: None)
  Receive Date: 20100802
  Receipt Date: 20071004
  Transmission Date: 20110219
  Serious: No
  Sender: FDA-Public Use
  Company Number: US-PFIZER INC-2007077451

PATIENT
  Sex: Male
  Weight: 71.818 kg

DRUGS (6)
  1. LYRICA [Suspect]
     Indication: MUSCLE SPASMS
     Route: 048
     Dates: start: 20070724
  2. LYRICA [Suspect]
     Indication: BACK PAIN
  3. AVODART [Concomitant]
  4. VITAMINS [Concomitant]
  5. LISINOPRIL [Concomitant]
  6. OTHER HYPNOTICS AND SEDATIVES [Concomitant]

REACTIONS (5)
  - DIPLOPIA [None]
  - DRUG EFFECT DECREASED [None]
  - INSOMNIA [None]
  - URTICARIA [None]
  - VISION BLURRED [None]
